FAERS Safety Report 16370216 (Version 1)
Quarter: 2019Q2

REPORT INFORMATION
  Report Type: Spontaneous
  Country: ES (occurrence: ES)
  Receive Date: 20190530
  Receipt Date: 20190530
  Transmission Date: 20190711
  Serious: Yes (Hospitalization, Other)
  Sender: FDA-Public Use
  Company Number: ES-AUROBINDO-AUR-APL-2019-029799

PATIENT

DRUGS (5)
  1. DAIVOBET [Concomitant]
     Active Substance: BETAMETHASONE DIPROPIONATE\CALCIPOTRIENE
     Indication: PRODUCT USED FOR UNKNOWN INDICATION
     Dosage: UNK (1 TUBE OF 60 G)
     Route: 061
     Dates: start: 201710
  2. SIMVASTATIN. [Concomitant]
     Active Substance: SIMVASTATIN
     Indication: DYSLIPIDAEMIA
     Dosage: UNK
     Route: 048
     Dates: start: 2012
  3. OMEPRAZOLE. [Concomitant]
     Active Substance: OMEPRAZOLE
     Indication: PRODUCT USED FOR UNKNOWN INDICATION
     Dosage: 20 MILLIGRAM, TWO TIMES A DAY
     Route: 048
     Dates: start: 2012
  4. FLUCONAZOLE. [Suspect]
     Active Substance: FLUCONAZOLE
     Indication: OESOPHAGEAL CANDIDIASIS
     Dosage: 100 MILLIGRAM, DAILY
     Route: 048
     Dates: start: 20181224, end: 20181231
  5. NYSTATIN. [Concomitant]
     Active Substance: NYSTATIN
     Indication: OESOPHAGEAL CANDIDIASIS
     Dosage: UNK
     Route: 048
     Dates: start: 20181221, end: 20190423

REACTIONS (1)
  - Hepatitis cholestatic [Recovered/Resolved]

NARRATIVE: CASE EVENT DATE: 20181231
